FAERS Safety Report 25625297 (Version 1)
Quarter: 2025Q3

REPORT INFORMATION
  Report Type: Spontaneous
  Country: US (occurrence: US)
  Receive Date: 20250731
  Receipt Date: 20250731
  Transmission Date: 20251020
  Serious: No
  Sender: TAKEDA
  Company Number: US-TAKEDA-2025TUS067205

PATIENT
  Sex: Female

DRUGS (2)
  1. TRINTELLIX [Suspect]
     Active Substance: VORTIOXETINE HYDROBROMIDE
     Indication: Product used for unknown indication
  2. TOFRANIL [Concomitant]
     Active Substance: IMIPRAMINE HYDROCHLORIDE

REACTIONS (2)
  - Burning sensation [Unknown]
  - Vulvovaginal burning sensation [Unknown]
